FAERS Safety Report 9154193 (Version 1)
Quarter: 2013Q1

REPORT INFORMATION
  Report Type: Spontaneous
  Country: US (occurrence: None)
  Receive Date: 20130306
  Receipt Date: 20130306
  Transmission Date: 20140127
  Serious: Yes (Other)
  Sender: FDA-Public Use
  Company Number: None

PATIENT
  Age: 55 Year
  Sex: Female
  Weight: 81.65 kg

DRUGS (1)
  1. PRESTIQ [Suspect]
     Indication: HOT FLUSH
     Dates: start: 20120815, end: 20130123

REACTIONS (1)
  - Withdrawal syndrome [None]
